FAERS Safety Report 20151081 (Version 1)
Quarter: 2021Q4

REPORT INFORMATION
  Report Type: Spontaneous
  Country: US (occurrence: None)
  Receive Date: 20211204
  Receipt Date: 20211204
  Transmission Date: 20220303
  Serious: Yes (Life-Threatening, Hospitalization)
  Sender: FDA-Public Use
  Company Number: None

PATIENT
  Age: 63 Year
  Sex: Male

DRUGS (1)
  1. APIXABAN [Suspect]
     Active Substance: APIXABAN
     Indication: Haemorrhagic stroke
     Dosage: FREQUENCY : TWICE A DAY;?
     Route: 048
     Dates: start: 20210930, end: 20211022

REACTIONS (3)
  - Subarachnoid haemorrhage [None]
  - Intraventricular haemorrhage [None]
  - Haemorrhage intracranial [None]

NARRATIVE: CASE EVENT DATE: 20211022
